FAERS Safety Report 9835908 (Version 1)
Quarter: 2014Q1

REPORT INFORMATION
  Report Type: Spontaneous
  Country: AU (occurrence: AU)
  Receive Date: 20140122
  Receipt Date: 20140122
  Transmission Date: 20141002
  Serious: Yes (Other)
  Sender: FDA-Public Use
  Company Number: PHHY2014AU007118

PATIENT
  Sex: Female

DRUGS (2)
  1. CLOZAPINE [Suspect]
     Dosage: UNK UKN, UNK
  2. ZUCLOPENTHIXOL DECANOATE [Suspect]
     Dosage: UNK UKN, UNK

REACTIONS (3)
  - Pericarditis [Unknown]
  - Pericardial effusion [Unknown]
  - Cardiomyopathy [Unknown]
